FAERS Safety Report 5369058-X (Version None)
Quarter: 2007Q2

REPORT INFORMATION
  Report Type: 
  Country: None (occurrence: None)
  Receive Date: 20070625
  Receipt Date: 20070207
  Transmission Date: 20071010
  Serious: No
  Sender: FDA-Public Use
  Company Number: US-ASTRAZENECA-2007UW02631

PATIENT
  Age: 23739 Day
  Sex: Female
  Weight: 90.7 kg

DRUGS (3)
  1. CRESTOR [Suspect]
     Indication: BLOOD CHOLESTEROL INCREASED
     Route: 048
     Dates: start: 20060503
  2. AVALIDE [Concomitant]
  3. CLOBEX [Concomitant]

REACTIONS (1)
  - ECZEMA [None]
